FAERS Safety Report 18355593 (Version 3)
Quarter: 2020Q4

REPORT INFORMATION
  Report Type: Report from Study
  Country: IT (occurrence: IT)
  Receive Date: 20201007
  Receipt Date: 20201113
  Transmission Date: 20210114
  Serious: Yes (Other)
  Sender: FDA-Public Use
  Company Number: IT-INCYTE CORPORATION-2020IN007653

PATIENT

DRUGS (6)
  1. JAKAVI [Suspect]
     Active Substance: RUXOLITINIB
     Dosage: 30 OT
     Route: 048
     Dates: start: 20191121
  2. JAKAVI [Suspect]
     Active Substance: RUXOLITINIB
     Indication: POLYCYTHAEMIA VERA
     Dosage: 20 OT
     Route: 048
     Dates: start: 20181212, end: 20191120
  3. LIXIANA [Concomitant]
     Active Substance: EDOXABAN TOSYLATE
     Indication: THROMBOSIS PROPHYLAXIS
  4. LIXIANA [Concomitant]
     Active Substance: EDOXABAN TOSYLATE
     Indication: ANTICOAGULATION DRUG LEVEL
     Dosage: 60 OT
     Route: 065
     Dates: start: 20190220
  5. ONCO CARBIDE [Concomitant]
     Active Substance: HYDROXYUREA
     Indication: CYTOREDUCTIVE SURGERY
     Dosage: 500 OT
     Route: 065
     Dates: start: 20181210, end: 20190208
  6. SELEPARINA [Concomitant]
     Active Substance: NADROPARIN CALCIUM
     Indication: THROMBOSIS PROPHYLAXIS
     Dosage: 3800 OT
     Route: 065
     Dates: start: 20180917, end: 20190219

REACTIONS (7)
  - Intermittent claudication [Unknown]
  - Paraesthesia [Unknown]
  - Sensory loss [Unknown]
  - Tongue ulceration [Unknown]
  - Syncope [Recovered/Resolved]
  - Asthenia [Unknown]
  - Spinal pain [Unknown]

NARRATIVE: CASE EVENT DATE: 20190109
